FAERS Safety Report 16757323 (Version 2)
Quarter: 2019Q4

REPORT INFORMATION
  Report Type: Spontaneous
  Country: US (occurrence: US)
  Receive Date: 20190829
  Receipt Date: 20191128
  Transmission Date: 20200122
  Serious: No
  Sender: FDA-Public Use
  Company Number: US-LEO PHARMA-323822

PATIENT
  Sex: Male

DRUGS (1)
  1. PICATO [Suspect]
     Active Substance: INGENOL MEBUTATE
     Indication: ACTINIC KERATOSIS
     Dosage: DAILY
     Route: 061
     Dates: start: 20190818, end: 20190818

REACTIONS (3)
  - Skin lesion [Not Recovered/Not Resolved]
  - Incorrect product administration duration [Unknown]
  - Product storage error [Unknown]

NARRATIVE: CASE EVENT DATE: 20190818
